FAERS Safety Report 23647329 (Version 2)
Quarter: 2025Q1

REPORT INFORMATION
  Report Type: Spontaneous
  Country: PL (occurrence: PL)
  Receive Date: 20240319
  Receipt Date: 20250324
  Transmission Date: 20250408
  Serious: Yes (Other)
  Sender: MYLAN
  Company Number: None

PATIENT
  Age: 81 Year
  Sex: Male
  Weight: 83 kg

DRUGS (5)
  1. VANCOMYCIN [Suspect]
     Active Substance: VANCOMYCIN
     Indication: Cerebrovascular disorder
     Dosage: 2 GRAM, QD
     Dates: start: 20200713, end: 20200818
  2. VANCOMYCIN [Suspect]
     Active Substance: VANCOMYCIN
     Indication: Intervertebral discitis
  3. RIFAMPIN [Suspect]
     Active Substance: RIFAMPIN
     Indication: Product used for unknown indication
     Dosage: 300 MILLIGRAM,BID,(THE DRUG WAS ADMINISTERED AGAIN AFTER 2 DAYS)
     Dates: start: 20200817, end: 20200818
  4. RIFAMPIN [Suspect]
     Active Substance: RIFAMPIN
  5. CEFTRIAXONE SODIUM [Suspect]
     Active Substance: CEFTRIAXONE SODIUM
     Indication: Intervertebral discitis
     Dosage: 2 GRAM, BID
     Dates: start: 20200713, end: 20200802

REACTIONS (4)
  - Skin reaction [Recovered/Resolved]
  - Anaemia [Recovered/Resolved]
  - Neutropenia [Recovered/Resolved]
  - Rash [Recovered/Resolved]
